FAERS Safety Report 21885605 (Version 1)
Quarter: 2023Q1

REPORT INFORMATION
  Report Type: Spontaneous
  Country: US (occurrence: US)
  Receive Date: 20230119
  Receipt Date: 20230119
  Transmission Date: 20230418
  Serious: No
  Sender: FDA-Public Use
  Company Number: US-BRISTOL-MYERS SQUIBB COMPANY-2023-008704

PATIENT
  Age: 80 Year
  Sex: Female

DRUGS (1)
  1. REVLIMID [Suspect]
     Active Substance: LENALIDOMIDE
     Indication: Plasma cell myeloma
     Dosage: DOSE : 1 CYCLE;     FREQ : ONE CAPSULE DAILY FOR 21 DAYS WITH 7 DAYS OFF
     Route: 048

REACTIONS (2)
  - Respiratory syncytial virus test positive [Unknown]
  - Influenza virus test positive [Unknown]

NARRATIVE: CASE EVENT DATE: 20221223
